FAERS Safety Report 6030956-5 (Version None)
Quarter: 2009Q1

REPORT INFORMATION
  Report Type: 
  Country: None (occurrence: None)
  Receive Date: 20090106
  Receipt Date: 20081216
  Transmission Date: 20090719
  Serious: Yes (Hospitalization, Congenital Anomaly)
  Sender: FDA-Public Use
  Company Number: 380013E08SWE

PATIENT
  Sex: Male

DRUGS (1)
  1. CRINONE [Suspect]
     Dosage: IVF
     Dates: start: 20080130, end: 20080220

REACTIONS (2)
  - FALLOT'S TETRALOGY [None]
  - MATERNAL DRUGS AFFECTING FOETUS [None]
